FAERS Safety Report 4739235-7 (Version None)
Quarter: 2005Q3

REPORT INFORMATION
  Report Type: 
  Country: None (occurrence: None)
  Receive Date: 20050810
  Receipt Date: 20050601
  Transmission Date: 20060218
  Serious: No
  Sender: FDA-Public Use
  Company Number: US-GLAXOSMITHKLINE-A0561176A

PATIENT
  Age: 40 Year
  Sex: Female

DRUGS (1)
  1. PAXIL CR [Suspect]
     Indication: DEPRESSION
     Dosage: 37.5MG IN THE MORNING
     Route: 048
     Dates: start: 20050111, end: 20050507

REACTIONS (1)
  - ALOPECIA [None]
